FAERS Safety Report 5465993-2 (Version None)
Quarter: 2007Q3

REPORT INFORMATION
  Report Type: 
  Country: None (occurrence: None)
  Receive Date: 20070924
  Receipt Date: 20070917
  Transmission Date: 20080115
  Serious: Yes (Other)
  Sender: FDA-Public Use
  Company Number: US-BOEHRINGER INGELHEIM PHARMACEUTICALS, INC.-2007-BP-21181RO

PATIENT
  Age: 22 Year
  Sex: Female

DRUGS (10)
  1. CLONIDINE HCL [Suspect]
  2. PREDNISONE [Suspect]
  3. ASPIRIN [Suspect]
  4. MYCOPHENOLATE MOFETIL [Suspect]
  5. TACROLIMUS [Suspect]
  6. TRIMETHOPRIM + SULFAMETHOXAZOLE [Suspect]
  7. MAGNESIUM OXIDE [Suspect]
  8. GANCILCOVIR [Suspect]
  9. OMEPRAZOLE [Suspect]
  10. EPOGEN [Suspect]
     Indication: ANAEMIA

REACTIONS (1)
  - NEPHROGENIC SYSTEMIC FIBROSIS [None]
